FAERS Safety Report 7534758-X (Version None)
Quarter: 2011Q2

REPORT INFORMATION
  Report Type: 
  Country: None (occurrence: None)
  Receive Date: 20110609
  Receipt Date: 20080723
  Transmission Date: 20111010
  Serious: Yes (Death, Hospitalization, Other)
  Sender: FDA-Public Use
  Company Number: PHFR2008GB01193

PATIENT
  Sex: Male

DRUGS (2)
  1. FENTANYL [Concomitant]
     Indication: DEPRESSED LEVEL OF CONSCIOUSNESS
     Dosage: UNK
  2. CLOZAPINE [Suspect]
     Indication: SCHIZOPHRENIA
     Route: 048
     Dates: start: 19990727

REACTIONS (2)
  - MALIGNANT MELANOMA [None]
  - NEOPLASM MALIGNANT [None]
